FAERS Safety Report 20336231 (Version 1)
Quarter: 2022Q1

REPORT INFORMATION
  Report Type: Spontaneous
  Country: US (occurrence: None)
  Receive Date: 20220114
  Receipt Date: 20220114
  Transmission Date: 20220423
  Serious: No
  Sender: FDA-Public Use
  Company Number: None

PATIENT
  Age: 83 Year
  Sex: Female

DRUGS (8)
  1. REPATHA [Suspect]
     Active Substance: EVOLOCUMAB
     Indication: Hyperlipidaemia
     Dosage: OTHER FREQUENCY : EVERY 2 WEEKS;?
     Route: 058
     Dates: start: 20210302, end: 20211201
  2. ASPIRIN [Concomitant]
     Active Substance: ASPIRIN
     Dates: start: 20210224
  3. COQ-10 CAPS [Concomitant]
     Dates: start: 20210224
  4. MAGNESIUM 200MG [Concomitant]
     Dates: start: 20210224
  5. VITAMIN B12 [Concomitant]
     Active Substance: CYANOCOBALAMIN
     Dates: start: 20210224
  6. VITAMIN D3 [Concomitant]
     Active Substance: CHOLECALCIFEROL
     Dates: start: 20210224
  7. HYDROCHLOROTHIAZIDE [Concomitant]
     Active Substance: HYDROCHLOROTHIAZIDE
     Dates: start: 20210224
  8. PREDNISONE [Concomitant]
     Active Substance: PREDNISONE
     Dates: start: 20210224

REACTIONS (1)
  - Muscle spasms [None]
